FAERS Safety Report 5714163-9 (Version None)
Quarter: 2008Q2

REPORT INFORMATION
  Report Type: 
  Country: None (occurrence: None)
  Receive Date: 20080423
  Receipt Date: 20071001
  Transmission Date: 20081010
  Serious: No
  Sender: FDA-Public Use
  Company Number: US-KINGPHARMUSA00001-K200701271

PATIENT

DRUGS (4)
  1. SKELAXIN [Suspect]
     Indication: MUSCLE STRAIN
     Dosage: 800 MG, TID
     Route: 048
     Dates: start: 20070925, end: 20070928
  2. DIOVAN HCT [Suspect]
     Indication: HYPERTENSION
     Dosage: 320 MG, QD
     Route: 048
     Dates: start: 20070901
  3. NORVASC [Concomitant]
     Indication: HYPERTENSION
     Dosage: 10 MG, QD
     Route: 048
  4. FOSAMAX [Concomitant]
     Indication: RESORPTION BONE INCREASED
     Dosage: 10 MG, QW
     Route: 048

REACTIONS (3)
  - NEURALGIA [None]
  - PAIN OF SKIN [None]
  - URTICARIA [None]
